FAERS Safety Report 5753821-7 (Version None)
Quarter: 2008Q2

REPORT INFORMATION
  Report Type: 
  Country: None (occurrence: None)
  Receive Date: 20080530
  Receipt Date: 20080523
  Transmission Date: 20081010
  Serious: Yes (Other)
  Sender: FDA-Public Use
  Company Number: JP-MERCK-0805USA05704

PATIENT
  Age: 82 Year
  Sex: Female

DRUGS (7)
  1. FOSAMAX [Suspect]
     Indication: OSTEOPOROSIS
     Route: 048
     Dates: start: 20080423, end: 20080430
  2. MAGNESIUM OXIDE [Concomitant]
     Route: 048
  3. URSO 250 [Concomitant]
     Route: 048
  4. MEVALOTIN [Concomitant]
     Route: 048
  5. MARZULENE [Concomitant]
     Route: 048
  6. VESICARE [Concomitant]
     Route: 048
  7. TRYPTANOL [Concomitant]
     Route: 048

REACTIONS (4)
  - GINGIVAL PAIN [None]
  - HEADACHE [None]
  - OTITIS EXTERNA [None]
  - VOCAL CORD PARALYSIS [None]
